FAERS Safety Report 7227422-8 (Version None)
Quarter: 2011Q1

REPORT INFORMATION
  Report Type: 
  Country: None (occurrence: None)
  Receive Date: 20110114
  Receipt Date: 20110113
  Transmission Date: 20110831
  Serious: Yes (Death)
  Sender: FDA-Public Use
  Company Number: GR-PFIZER INC-2011008378

PATIENT
  Age: 61 Year
  Sex: Male
  Weight: 77 kg

DRUGS (6)
  1. CEFOXITIN [Suspect]
     Indication: ABDOMINAL INFECTION
     Dosage: 2 G, 4X/DAY
     Route: 042
     Dates: start: 20090311, end: 20090315
  2. CEFOXITIN [Suspect]
     Dosage: 2 G, 3X/DAY
     Route: 042
     Dates: start: 20090316, end: 20090325
  3. PIPERACILLIN AND TAZOBACTAM [Suspect]
     Dosage: 4.5 G, 1X/DAY
     Route: 042
     Dates: start: 20090414, end: 20090414
  4. METRONIDAZOLE [Suspect]
     Dosage: 0.5 G, 1X/DAY
     Route: 042
     Dates: start: 20090330, end: 20090330
  5. PIPERACILLIN AND TAZOBACTAM [Suspect]
     Dosage: 4.5 G, 3X/DAY
     Route: 042
     Dates: start: 20090412, end: 20090413
  6. METRONIDAZOLE [Suspect]
     Dosage: 0.5 G, 3X/DAY
     Route: 042
     Dates: start: 20090326, end: 20090329

REACTIONS (5)
  - ESCHERICHIA TEST POSITIVE [None]
  - ACINETOBACTER TEST POSITIVE [None]
  - PROTEUS TEST POSITIVE [None]
  - DEATH [None]
  - PSEUDOMONAS TEST POSITIVE [None]
